FAERS Safety Report 7308982-5 (Version None)
Quarter: 2011Q1

REPORT INFORMATION
  Report Type: 
  Country: None (occurrence: None)
  Receive Date: 20110211
  Receipt Date: 20110208
  Transmission Date: 20110831
  Serious: Yes (Death, Hospitalization)
  Sender: FDA-Public Use
  Company Number: 2007-160271-NL

PATIENT
  Age: 31 Year
  Sex: Female
  Weight: 60 kg

DRUGS (5)
  1. ALLEGRA [Concomitant]
  2. ZOLOFT [Concomitant]
  3. LEVOXYL [Concomitant]
  4. NUVARING [Suspect]
     Indication: CONTRACEPTION
     Dosage: 1 DF
     Dates: start: 20050801, end: 20060224
  5. LUNESTA [Concomitant]

REACTIONS (19)
  - CARDIAC ARREST [None]
  - SUBCLAVIAN VEIN THROMBOSIS [None]
  - SINUS TACHYCARDIA [None]
  - VENTRICULAR EXTRASYSTOLES [None]
  - HYPOKALAEMIA [None]
  - CONFUSIONAL STATE [None]
  - CEREBROVASCULAR ACCIDENT [None]
  - CAROTID ARTERY THROMBOSIS [None]
  - MENTAL IMPAIRMENT [None]
  - CEREBRAL THROMBOSIS [None]
  - BRAIN DEATH [None]
  - BRAIN HERNIATION [None]
  - RESPIRATORY FAILURE [None]
  - TRICUSPID VALVE INCOMPETENCE [None]
  - UNRESPONSIVE TO STIMULI [None]
  - GRAND MAL CONVULSION [None]
  - VENOUS THROMBOSIS [None]
  - CEREBRAL INFARCTION [None]
  - CYST [None]
